FAERS Safety Report 16642453 (Version 1)
Quarter: 2019Q3

REPORT INFORMATION
  Report Type: Spontaneous
  Country: FR (occurrence: FR)
  Receive Date: 20190729
  Receipt Date: 20190729
  Transmission Date: 20191004
  Serious: Yes (Hospitalization, Other)
  Sender: FDA-Public Use
  Company Number: FR-MYLANLABS-2019M1070022

PATIENT
  Age: 69 Year
  Sex: Female
  Weight: 120 kg

DRUGS (3)
  1. FONDAPARINUX [Suspect]
     Active Substance: FONDAPARINUX
     Indication: ERYSIPELAS
     Dosage: 10 MILLIGRAM, QD
     Route: 058
     Dates: start: 20190525, end: 20190604
  2. DOLIPRANE [Concomitant]
     Active Substance: ACETAMINOPHEN
     Dosage: UNK
  3. PYOSTACINE [Suspect]
     Active Substance: PRISTINAMYCIN
     Indication: ERYSIPELAS
     Dosage: 2 DOSAGE FORM, TID
     Route: 048
     Dates: start: 20190525, end: 20190606

REACTIONS (3)
  - Off label use [Unknown]
  - Blood loss anaemia [Recovering/Resolving]
  - Melaena [Recovered/Resolved]

NARRATIVE: CASE EVENT DATE: 20190525
